FAERS Safety Report 5089783-8 (Version None)
Quarter: 2006Q3

REPORT INFORMATION
  Report Type: 
  Country: None (occurrence: None)
  Receive Date: 20060731
  Receipt Date: 20060118
  Transmission Date: 20061208
  Serious: Yes (Other)
  Sender: FDA-Public Use
  Company Number: US200601000647

PATIENT
  Age: 82 Year
  Sex: Female
  Weight: 37.6 kg

DRUGS (7)
  1. FORTEO [Suspect]
     Indication: OSTEOPOROSIS
     Dosage: 20 UG/DAY
     Dates: start: 20051207
  2. FORTEO [Concomitant]
  3. CELEBREX [Concomitant]
  4. ASA (ASPIRIN (ACETYLSALICYLIC ACID) [Concomitant]
  5. CALTRATE (CALCIUM CARBONATE) [Concomitant]
  6. AMITRIPTYLINE HCL [Concomitant]
  7. EVISTA [Concomitant]

REACTIONS (3)
  - HEAD INJURY [None]
  - MUSCLE SPASMS [None]
  - SYNCOPE [None]
